FAERS Safety Report 9522065 (Version 1)
Quarter: 2013Q1

REPORT INFORMATION
  Report Type: Spontaneous
  Country: US (occurrence: None)
  Receive Date: 20130305
  Receipt Date: 20130305
  Transmission Date: 20140127
  Serious: Yes (Hospitalization, Other)
  Sender: FDA-Public Use
  Company Number: 163-21880-12031648

PATIENT
  Age: 53 Year
  Sex: Male

DRUGS (7)
  1. REVLIMID (LENALIDOMIDE) (CAPSULES) [Suspect]
     Indication: PLASMA CELL MYELOMA
     Dosage: 10 MG, 3X/WK, PO
     Route: 048
     Dates: start: 200907, end: 201108
  2. PREDNISONE [Concomitant]
  3. LISINOPRIL [Concomitant]
  4. ATROVENT (IPRATROPIUM BROMIDE) [Concomitant]
  5. ALBUTEROL (SALBUTAMOL) [Concomitant]
  6. PHOSLO (CALCIUM ACETATE) [Concomitant]
  7. RENAL (NEPHROVITE) [Concomitant]

REACTIONS (2)
  - Cerebrovascular accident [None]
  - Hemiplegia [None]
